FAERS Safety Report 19773285 (Version 1)
Quarter: 2021Q3

REPORT INFORMATION
  Report Type: Spontaneous
  Country: US (occurrence: US)
  Receive Date: 20210901
  Receipt Date: 20210901
  Transmission Date: 20211014
  Serious: No
  Sender: FDA-Public Use
  Company Number: US-TEVA-2021-US-1947250

PATIENT
  Sex: Female

DRUGS (2)
  1. FREMANEZUMAB [Suspect]
     Active Substance: FREMANEZUMAB
  2. FREMANEZUMAB [Suspect]
     Active Substance: FREMANEZUMAB
     Route: 065

REACTIONS (4)
  - Injection site erythema [Unknown]
  - Injection site rash [Unknown]
  - Injection site reaction [Unknown]
  - Injection site papule [Unknown]
